FAERS Safety Report 23651594 (Version 1)
Quarter: 2024Q1

REPORT INFORMATION
  Report Type: Spontaneous
  Country: US (occurrence: US)
  Receive Date: 20240320
  Receipt Date: 20240320
  Transmission Date: 20240410
  Serious: No
  Sender: FDA-Public Use
  Company Number: US-BRISTOL-MYERS SQUIBB COMPANY-2024-044510

PATIENT
  Age: 73 Year
  Sex: Male
  Weight: 146.96 kg

DRUGS (5)
  1. LENALIDOMIDE [Suspect]
     Active Substance: LENALIDOMIDE
     Indication: Follicular lymphoma
     Route: 048
     Dates: start: 20230919
  2. CARVEDILOL [Concomitant]
     Active Substance: CARVEDILOL
     Route: 048
     Dates: start: 20230907
  3. ASPIRIN [Concomitant]
     Active Substance: ASPIRIN
     Route: 048
     Dates: start: 20230907
  4. FINASTERIDE [Concomitant]
     Active Substance: FINASTERIDE
     Route: 048
     Dates: start: 20230907
  5. RITUXAN [Concomitant]
     Active Substance: RITUXIMAB
     Dosage: 100/10 MG/ML
     Route: 042
     Dates: start: 20230907

REACTIONS (2)
  - COVID-19 [Recovering/Resolving]
  - Sinusitis [Recovering/Resolving]
